FAERS Safety Report 11216584 (Version 1)
Quarter: 2015Q2

REPORT INFORMATION
  Report Type: Spontaneous
  Country: DE (occurrence: DE)
  Receive Date: 20150624
  Receipt Date: 20150624
  Transmission Date: 20150821
  Serious: Yes (Hospitalization)
  Sender: FDA-Public Use
  Company Number: DE-TEVA-572268GER

PATIENT
  Age: 76 Year
  Sex: Female

DRUGS (6)
  1. FUROSEMIDE. [Concomitant]
     Active Substance: FUROSEMIDE
     Dosage: 40MG
     Route: 042
  2. AMIODARONE [Interacting]
     Active Substance: AMIODARONE
     Dosage: 150MG (SINGLE DOSE)
     Route: 042
  3. DRONEDARONE [Interacting]
     Active Substance: DRONEDARONE
     Indication: ATRIAL TACHYCARDIA
     Dosage: 800 MILLIGRAM DAILY;
     Route: 065
  4. PHENPROCOUMON [Concomitant]
     Active Substance: PHENPROCOUMON
  5. DIGOXIN. [Suspect]
     Active Substance: DIGOXIN
     Route: 042
  6. METOPROLOL [Concomitant]
     Active Substance: METOPROLOL
     Indication: ATRIAL TACHYCARDIA
     Dosage: 95 MILLIGRAM DAILY;
     Route: 065

REACTIONS (4)
  - Drug interaction [Recovered/Resolved]
  - Torsade de pointes [Recovered/Resolved]
  - Wrong drug administered [Recovered/Resolved]
  - Tachycardia [Recovered/Resolved]
